FAERS Safety Report 4864314-3 (Version None)
Quarter: 2005Q4

REPORT INFORMATION
  Report Type: 
  Country: None (occurrence: None)
  Receive Date: 20051222
  Receipt Date: 20050616
  Transmission Date: 20060501
  Serious: Yes (Hospitalization, Disabling, Other)
  Sender: FDA-Public Use
  Company Number: US-MERCK-0506USA02688

PATIENT
  Age: 47 Year
  Sex: Female
  Weight: 66 kg

DRUGS (17)
  1. VIOXX [Suspect]
     Indication: ARTHRALGIA
     Route: 048
     Dates: start: 20030501, end: 20040801
  2. VIOXX [Suspect]
     Indication: SHOULDER PAIN
     Route: 048
     Dates: start: 20030501, end: 20040801
  3. COUMADIN [Concomitant]
     Indication: CEREBROVASCULAR ACCIDENT
     Route: 065
     Dates: start: 19901223
  4. COUMADIN [Concomitant]
     Indication: TAKAYASU'S ARTERITIS
     Route: 065
     Dates: start: 19901223
  5. ZOCOR [Concomitant]
     Indication: BLOOD CHOLESTEROL INCREASED
     Route: 065
     Dates: start: 20000801
  6. NAPROXEN [Concomitant]
     Route: 065
  7. ALOE [Concomitant]
     Route: 065
     Dates: start: 19950101
  8. VITAMIN E [Concomitant]
     Route: 065
     Dates: start: 19950101
  9. CIMICIFUGA [Concomitant]
     Route: 065
     Dates: start: 19950101
  10. MELATONIN [Concomitant]
     Route: 065
     Dates: start: 19950101
  11. VITAMIN B COMPLEX [Concomitant]
     Route: 065
     Dates: start: 19950101
  12. CALCIUM (UNSPECIFIED) [Concomitant]
     Route: 065
     Dates: start: 19950101
  13. VITAMIN D (UNSPECIFIED) [Concomitant]
     Route: 065
     Dates: start: 19950101
  14. VITAMINS (UNSPECIFIED) [Concomitant]
     Route: 065
     Dates: start: 19950101
  15. PROZAC [Concomitant]
     Route: 065
     Dates: start: 19960101, end: 20041201
  16. ELAVIL [Concomitant]
     Route: 065
     Dates: start: 20010901, end: 20041201
  17. XANAX [Concomitant]
     Route: 065
     Dates: start: 20000801

REACTIONS (12)
  - CEREBROVASCULAR ACCIDENT [None]
  - DEPRESSION [None]
  - DYSPEPSIA [None]
  - GENERALISED ANXIETY DISORDER [None]
  - HAEMATOCHEZIA [None]
  - HYPERTENSION [None]
  - MYOCARDIAL INFARCTION [None]
  - POLYTRAUMATISM [None]
  - SLEEP APNOEA SYNDROME [None]
  - SLEEP DISORDER [None]
  - TAKAYASU'S ARTERITIS [None]
  - TRANSIENT ISCHAEMIC ATTACK [None]
